FAERS Safety Report 7025400-5 (Version None)
Quarter: 2010Q4

REPORT INFORMATION
  Report Type: 
  Country: None (occurrence: None)
  Receive Date: 20101001
  Receipt Date: 20100923
  Transmission Date: 20110411
  Serious: Yes (Life-Threatening, Other)
  Sender: FDA-Public Use
  Company Number: PHEH2010US03792

PATIENT
  Sex: Female
  Weight: 51 kg

DRUGS (6)
  1. SIMULECT [Suspect]
     Indication: RENAL TRANSPLANT
     Dosage: 20 MG
     Route: 042
     Dates: start: 20100816, end: 20100816
  2. SOLU-MEDROL [Concomitant]
     Dosage: 500 MG
     Route: 042
     Dates: start: 20100816, end: 20100816
  3. COLLOID [Concomitant]
  4. STEROIDS NOS [Concomitant]
  5. BENADRYL [Concomitant]
  6. CRYSTALLOIDS [Concomitant]

REACTIONS (4)
  - ANAPHYLACTIC REACTION [None]
  - HYPOTENSION [None]
  - RENAL ARTERY THROMBOSIS [None]
  - THROMBOEMBOLECTOMY [None]
